FAERS Safety Report 5987950-X (Version None)
Quarter: 2008Q4

REPORT INFORMATION
  Report Type: 
  Country: None (occurrence: None)
  Receive Date: 20081210
  Receipt Date: 20080416
  Transmission Date: 20090506
  Serious: No
  Sender: FDA-Public Use
  Company Number: US-AMGEN-KDL274820

PATIENT
  Sex: Female

DRUGS (2)
  1. ENBREL [Suspect]
     Indication: PSORIATIC ARTHROPATHY
     Route: 058
     Dates: start: 20040820
  2. ENBREL [Suspect]
     Indication: PSORIASIS

REACTIONS (3)
  - HERPES ZOSTER [None]
  - INJECTION SITE PAIN [None]
  - RASH [None]
